FAERS Safety Report 12069076 (Version 1)
Quarter: 2016Q1

REPORT INFORMATION
  Report Type: Other
  Country: None (occurrence: US)
  Receive Date: 20160211
  Receipt Date: 20160211
  Transmission Date: 20160526
  Serious: Yes (Hospitalization)
  Sender: FDA-Public Use
  Company Number: US-HETERO LABS LTD-1047650

PATIENT
  Age: 26 Year
  Sex: Male

DRUGS (7)
  1. FENTANYL. [Concomitant]
     Active Substance: FENTANYL
     Route: 065
  2. SUFENTANIL CITRATE. [Concomitant]
     Active Substance: SUFENTANIL CITRATE
     Route: 065
  3. PROPOFOL. [Concomitant]
     Active Substance: PROPOFOL
  4. GLUCOSE [Concomitant]
     Active Substance: DEXTROSE
     Route: 065
  5. HYDROXYCUT [Concomitant]
     Active Substance: HERBALS
  6. VECURONIUM [Concomitant]
     Active Substance: VECURONIUM BROMIDE
     Route: 065
  7. HYDRALAZINE [Suspect]
     Active Substance: HYDRALAZINE HYDROCHLORIDE

REACTIONS (2)
  - Condition aggravated [Unknown]
  - Porphyria acute [Unknown]
